FAERS Safety Report 8661439 (Version 2)
Quarter: 2012Q4

REPORT INFORMATION
  Report Type: Report from Study
  Country: CA (occurrence: CA)
  Receive Date: 20120712
  Receipt Date: 20120907
  Transmission Date: 20130627
  Serious: Yes (Other)
  Sender: FDA-Public Use
  Company Number: CA-JNJFOC-20120701527

PATIENT
  Age: 64 Year
  Sex: Male
  Weight: 56.4 kg

DRUGS (16)
  1. REMICADE [Suspect]
     Indication: CROHN^S DISEASE
     Dosage: 25th infusion
     Route: 042
     Dates: start: 20120703
  2. REMICADE [Suspect]
     Indication: CROHN^S DISEASE
     Dosage: 24th infusion
     Route: 042
     Dates: start: 20120507
  3. REMICADE [Suspect]
     Indication: CROHN^S DISEASE
     Route: 042
     Dates: start: 20080911
  4. IMURAN [Concomitant]
     Route: 048
  5. ASACOL [Concomitant]
     Route: 065
  6. ASPIRIN [Concomitant]
     Route: 065
  7. ATIVAN [Concomitant]
     Route: 065
  8. CALCIUM [Concomitant]
     Route: 065
  9. CENTRUM NOS [Concomitant]
     Route: 065
  10. VITAMIN D [Concomitant]
     Route: 065
  11. PANTOLOC [Concomitant]
     Route: 065
  12. ACTONEL [Concomitant]
     Route: 065
  13. HYDROCHLOROTHIAZIDE [Concomitant]
     Route: 065
  14. TRANDOLAPRIL [Concomitant]
     Route: 065
  15. FER-IN-SOL [Concomitant]
     Route: 065
  16. SENOKOT [Concomitant]
     Route: 065

REACTIONS (3)
  - Inguinal hernia [Recovered/Resolved]
  - Abdominal pain upper [Not Recovered/Not Resolved]
  - Constipation [Not Recovered/Not Resolved]
